FAERS Safety Report 8575884 (Version 2)
Quarter: 2012Q4

REPORT INFORMATION
  Report Type: 
  Country: IN (occurrence: IN)
  Receive Date: 20120523
  Receipt Date: 20120913
  Transmission Date: 20130627
  Serious: Yes (Death, Hospitalization)
  Sender: FDA-Public Use
  Company Number: PHHY2012IN043215

PATIENT
  Age: 70 Year
  Sex: Male

DRUGS (1)
  1. SEBIVO [Suspect]
     Dosage: 600 mg, UNK
     Route: 048

REACTIONS (3)
  - Death [Fatal]
  - Hepatitis [Unknown]
  - Hepatic cirrhosis [Unknown]
